FAERS Safety Report 19079570 (Version 1)
Quarter: 2021Q1

REPORT INFORMATION
  Report Type: Spontaneous
  Country: FR (occurrence: FR)
  Receive Date: 20210331
  Receipt Date: 20210331
  Transmission Date: 20210420
  Serious: Yes (Other)
  Sender: FDA-Public Use
  Company Number: FR-TEVA-2021-FR-1895305

PATIENT
  Age: 8 Month
  Sex: Female
  Weight: 56 kg

DRUGS (1)
  1. ACNETRAIT 20 MG, CAPSULE MOLLE [Suspect]
     Active Substance: ISOTRETINOIN
     Indication: ACNE
     Dosage: UNIT DOSE: 20 MILLIGRAM
     Route: 048
     Dates: start: 20181121, end: 20181219

REACTIONS (1)
  - Affective disorder [Not Recovered/Not Resolved]

NARRATIVE: CASE EVENT DATE: 201811
